FAERS Safety Report 4704473-6 (Version None)
Quarter: 2005Q2

REPORT INFORMATION
  Report Type: 
  Country: None (occurrence: None)
  Receive Date: 20050630
  Receipt Date: 20050630
  Transmission Date: 20051028
  Serious: Yes (Hospitalization)
  Sender: FDA-Public Use
  Company Number: None

PATIENT
  Age: 75 Year
  Sex: Male
  Weight: 87.5442 kg

DRUGS (2)
  1. ADENOSCAN [Suspect]
     Indication: CHEST PAIN
     Dosage: ONE TIME INTRAVENOU
     Route: 042
     Dates: start: 20050619, end: 20050619
  2. CARDIOLITE [Suspect]
     Indication: CHEST PAIN
     Dosage: ONE TIME INTRAVENOU
     Route: 042
     Dates: start: 20050619, end: 20050619

REACTIONS (2)
  - PROCEDURAL COMPLICATION [None]
  - PYREXIA [None]
